FAERS Safety Report 9705705 (Version 1)
Quarter: 2013Q4

REPORT INFORMATION
  Report Type: Spontaneous
  Country: US (occurrence: US)
  Receive Date: 20131122
  Receipt Date: 20131122
  Transmission Date: 20140711
  Serious: No
  Sender: FDA-Public Use
  Company Number: US-GILEAD-2008-0017711

PATIENT
  Age: 83 Year
  Sex: Male
  Weight: 72.57 kg

DRUGS (8)
  1. LETAIRIS [Suspect]
     Indication: PULMONARY ARTERIAL HYPERTENSION
     Route: 048
  2. ALBUTEROL [Concomitant]
     Route: 055
  3. PROVENTIL [Concomitant]
  4. ZYFLO [Concomitant]
     Route: 048
  5. ADVAIR [Concomitant]
  6. XOLAIR [Concomitant]
  7. DOXAZOSIN [Concomitant]
     Route: 048
  8. PROSCAR [Concomitant]
     Route: 048

REACTIONS (1)
  - Constipation [Not Recovered/Not Resolved]
